FAERS Safety Report 4640543-9 (Version None)
Quarter: 2005Q2

REPORT INFORMATION
  Report Type: 
  Country: None (occurrence: None)
  Receive Date: 20050420
  Receipt Date: 20050119
  Transmission Date: 20051028
  Serious: Yes (Death, Life-Threatening, Hospitalization)
  Sender: FDA-Public Use
  Company Number: GBWYE354819JAN05

PATIENT
  Sex: Female

DRUGS (15)
  1. ENBREL [Suspect]
     Indication: RHEUMATOID ARTHRITIS
     Dosage: UNKNOWN
     Dates: start: 20040824, end: 20050208
  2. SULFASALAZINE [Concomitant]
     Dosage: UNKNOWN
     Dates: end: 20041201
  3. METHOTREXATE [Concomitant]
  4. WARFARIN SODIUM [Concomitant]
  5. PREDNISOLONE [Concomitant]
  6. GOLD [Concomitant]
  7. PLAQUENIL [Concomitant]
  8. ARAVA [Concomitant]
  9. FOLIC ACID [Concomitant]
  10. CALCIUM CARBONATE [Concomitant]
  11. CYCLIZINE [Concomitant]
  12. ALENDRONATE SODIUM [Concomitant]
  13. PARACETAMOL [Concomitant]
  14. LANSOPRAZOLE [Concomitant]
  15. SIMVASTATIN [Concomitant]

REACTIONS (7)
  - CEREBRAL HAEMORRHAGE [None]
  - CEREBROVASCULAR ACCIDENT [None]
  - EMBOLISM [None]
  - GRAND MAL CONVULSION [None]
  - HEMIPARESIS [None]
  - METASTASIS [None]
  - METASTATIC MALIGNANT MELANOMA [None]
